FAERS Safety Report 24350856 (Version 4)
Quarter: 2025Q1

REPORT INFORMATION
  Report Type: Report from Study
  Country: AR (occurrence: AR)
  Receive Date: 20240923
  Receipt Date: 20250325
  Transmission Date: 20250408
  Serious: No
  Sender: JOHNSON AND JOHNSON
  Company Number: AR-JNJFOC-20240874794

PATIENT
  Age: 64 Year
  Sex: Male
  Weight: 110 kg

DRUGS (1)
  1. TREMFYA [Suspect]
     Active Substance: GUSELKUMAB
     Indication: Psoriatic arthropathy
     Route: 058
     Dates: start: 20240723

REACTIONS (5)
  - Myalgia [Unknown]
  - Device deployment issue [Unknown]
  - Product dose omission issue [Unknown]
  - Wrong technique in product usage process [Unknown]
  - Oedema [Unknown]

NARRATIVE: CASE EVENT DATE: 20240101
